FAERS Safety Report 4655179-3 (Version None)
Quarter: 2005Q2

REPORT INFORMATION
  Report Type: 
  Country: None (occurrence: None)
  Receive Date: 20050401
  Receipt Date: 20050107
  Transmission Date: 20051028
  Serious: No
  Sender: FDA-Public Use
  Company Number: SU-2005-002980

PATIENT
  Age: 63 Year
  Sex: Male
  Weight: 77.1115 kg

DRUGS (2)
  1. BENICAR HCT [Suspect]
     Indication: HYPERTENSION
     Dosage: 20.125 MG QD PO
     Route: 048
     Dates: start: 20040501
  2. GRAPEFRUIT JUICE [Suspect]
     Dates: start: 20041225, end: 20050101

REACTIONS (2)
  - BLOOD PRESSURE INCREASED [None]
  - FOOD INTERACTION [None]
